FAERS Safety Report 9377496 (Version 2)
Quarter: 2013Q3

REPORT INFORMATION
  Report Type: Spontaneous
  Country: US (occurrence: SE)
  Receive Date: 20130701
  Receipt Date: 20130701
  Transmission Date: 20140515
  Serious: Yes (Hospitalization)
  Sender: FDA-Public Use
  Company Number: US-PFIZER INC-K200301176

PATIENT
  Age: 56 Year
  Sex: Female

DRUGS (9)
  1. SOMAC [Suspect]
     Dosage: 40 MG, ONCE DAILY
     Route: 048
     Dates: start: 20030422, end: 20030512
  2. PROLOPRIM [Suspect]
     Indication: URINARY TRACT INFECTION
     Dosage: UNK
     Route: 048
     Dates: start: 20030428, end: 20030501
  3. ZINACEF [Suspect]
     Indication: PYREXIA
     Dosage: UNK
     Route: 042
     Dates: start: 20030502, end: 20030504
  4. CIPROXIN [Suspect]
     Dosage: UNK
     Route: 048
     Dates: start: 20030504, end: 20030508
  5. TRIMONIL [Suspect]
     Indication: CONVULSION
     Dosage: UNK
     Route: 048
     Dates: start: 20030423, end: 20030506
  6. ERGENYL [Suspect]
     Dosage: 400 MG, 1X/DAY
     Route: 048
     Dates: start: 20030506, end: 20030512
  7. ENOXAPARIN SODIUM [Suspect]
     Indication: PULMONARY EMBOLISM
     Dosage: UNK
     Route: 058
     Dates: start: 20030507, end: 20030512
  8. WARAN [Concomitant]
     Dosage: UNK
     Dates: start: 20030507
  9. BETAPRED [Concomitant]
     Dosage: UNK
     Dates: start: 200304

REACTIONS (4)
  - Pulmonary embolism [Recovered/Resolved]
  - Thrombocytosis [Recovered/Resolved]
  - Agranulocytosis [Recovered/Resolved]
  - Rash [Recovered/Resolved]
